FAERS Safety Report 9522551 (Version 1)
Quarter: 2013Q1

REPORT INFORMATION
  Report Type: Spontaneous
  Country: US (occurrence: None)
  Receive Date: 20130305
  Receipt Date: 20130305
  Transmission Date: 20140127
  Serious: Yes (Other)
  Sender: FDA-Public Use
  Company Number: 163-21880-12063862

PATIENT
  Age: 48 Year
  Sex: Male
  Weight: 70.31 kg

DRUGS (8)
  1. REVLIMID [Suspect]
     Indication: PLASMA CELL MYELOMA
     Route: 048
     Dates: start: 20111019, end: 20120628
  2. COUMADIN (WARFARIN SODIUM) (UNKNOWN) [Concomitant]
  3. COREG (CARVEDILOL) (UNKNOWN) [Concomitant]
  4. DILTIAZEM (DILTIAZEM) (UNKNOWN) (DILTIAZEM) [Concomitant]
  5. KEPPRA (LEVETIRACETAM) (UNKNOWN) [Concomitant]
  6. RENVELA (SEVELAMER CARBONATE) (UNKNOWN) [Concomitant]
  7. TERAZOSIN (TERAZOSIN) (UNKNOWN) [Concomitant]
  8. VALTREX (VALACICLOVIR HYDROCHLORIDE) (UNKNOWN) [Concomitant]

REACTIONS (2)
  - Renal failure [None]
  - Hypertension [None]
